FAERS Safety Report 20901637 (Version 1)
Quarter: 2022Q2

REPORT INFORMATION
  Report Type: Report from Study
  Country: US (occurrence: US)
  Receive Date: 20220601
  Receipt Date: 20220601
  Transmission Date: 20220721
  Serious: No
  Sender: FDA-Public Use
  Company Number: US-KYOWAKIRIN-2022BKK007667

PATIENT

DRUGS (1)
  1. CRYSVITA [Suspect]
     Active Substance: BUROSUMAB-TWZA
     Indication: Hereditary hypophosphataemic rickets
     Dosage: 150 MG, EVERY 28 DAYS
     Route: 065
     Dates: start: 20200304

REACTIONS (3)
  - COVID-19 [Unknown]
  - Overdose [Unknown]
  - Inappropriate schedule of product administration [Unknown]
